FAERS Safety Report 5008816-8 (Version None)
Quarter: 2006Q2

REPORT INFORMATION
  Report Type: 
  Country: None (occurrence: None)
  Receive Date: 20060518
  Receipt Date: 20060510
  Transmission Date: 20061013
  Serious: Yes (Other)
  Sender: FDA-Public Use
  Company Number: HQWYE259210MAY06

PATIENT
  Sex: Male

DRUGS (6)
  1. CORDARONE [Suspect]
     Dosage: 200 MG 1X PER 1 DAY, ORAL
     Route: 048
  2. FUROSEMIDE [Concomitant]
  3. ASPIRIN [Concomitant]
  4. COVERSYL (PERINDOPRIL) [Concomitant]
  5. PAROXETINE HCL [Concomitant]
  6. CARDICOR (BISOPROLOL) [Concomitant]

REACTIONS (1)
  - PULMONARY CONGESTION [None]
